FAERS Safety Report 22244770 (Version 1)
Quarter: 2023Q2

REPORT INFORMATION
  Report Type: Report from Study
  Country: US (occurrence: US)
  Receive Date: 20230424
  Receipt Date: 20230424
  Transmission Date: 20230721
  Serious: No
  Sender: FDA-Public Use
  Company Number: US-GBT-021813

PATIENT
  Age: 41 Year
  Sex: Male

DRUGS (10)
  1. OXBRYTA [Suspect]
     Active Substance: VOXELOTOR
     Indication: Sickle cell disease
     Dates: start: 20201124, end: 20220215
  2. ALBUTEROL [Concomitant]
     Active Substance: ALBUTEROL
     Indication: Product used for unknown indication
     Dosage: 90 MCG , 2 PUFFS Q6H
     Route: 055
     Dates: start: 20220118
  3. (VITAMIN C) [Concomitant]
     Indication: Product used for unknown indication
     Route: 048
     Dates: start: 20180420
  4. COLCRYS [Concomitant]
     Active Substance: COLCHICINE
     Indication: Product used for unknown indication
     Route: 048
     Dates: start: 20190827
  5. EPOETIN ALFA-EPBX [Concomitant]
     Active Substance: EPOETIN ALFA-EPBX
     Indication: Sickle cell disease
     Dosage: DOSAGE: 40000 U
     Route: 062
     Dates: start: 20200928
  6. naloxone (Narcan) [Concomitant]
     Indication: Overdose
     Dosage: 4 MG/ACTUATION NASAL SPRAY 1 SPRAY PRN
     Route: 045
     Dates: start: 20190320
  7. CYANOCOBALAMIN [Concomitant]
     Active Substance: CYANOCOBALAMIN
     Indication: Vitamin C deficiency
     Dosage: 1000MCG QD
     Route: 048
     Dates: start: 20180420
  8. sodium zirconium cyclosilicate (Lokelma) [Concomitant]
     Indication: Product used for unknown indication
     Route: 048
     Dates: start: 20210305
  9. LYRICA [Concomitant]
     Active Substance: PREGABALIN
     Indication: Product used for unknown indication
     Route: 048
     Dates: start: 20211110
  10. LASIX [Concomitant]
     Active Substance: FUROSEMIDE
     Indication: Sickle cell disease
     Route: 048
     Dates: start: 20210303

REACTIONS (1)
  - Headache [Unknown]

NARRATIVE: CASE EVENT DATE: 20220215
